FAERS Safety Report 8409972 (Version 2)
Quarter: 2013Q2

REPORT INFORMATION
  Report Type: Spontaneous
  Country: US (occurrence: None)
  Receive Date: 20111227
  Receipt Date: 20120426
  Transmission Date: 20140414
  Serious: No
  Sender: FDA-Public Use
  Company Number: PHEH2011US009251

PATIENT
  Age: 50 Year
  Sex: Female
  Weight: 108.8 kg

DRUGS (4)
  1. GILENYA [Suspect]
     Indication: MULTIPLE SCLEROSIS
     Dosage: 0.5 MG, DAILY, ORAL
     Route: 048
     Dates: start: 20111108
  2. FLONASE (FLUTICASONE PROPIONATE) [Concomitant]
  3. VITAMIN D (ERGOCALCIFEROL) [Concomitant]
  4. TYLENOL (PARACETAMOL) [Concomitant]

REACTIONS (1)
  - FATIGUE [None]
